FAERS Safety Report 16821645 (Version 1)
Quarter: 2019Q3

REPORT INFORMATION
  Report Type: Spontaneous
  Country: TH (occurrence: TH)
  Receive Date: 20190918
  Receipt Date: 20190918
  Transmission Date: 20191005
  Serious: Yes (Death, Life-Threatening, Hospitalization)
  Sender: FDA-Public Use
  Company Number: PHHY2019TH216314

PATIENT
  Age: 35 Year
  Sex: Male

DRUGS (2)
  1. AMOXICILLIN. [Concomitant]
     Active Substance: AMOXICILLIN
     Indication: SINUSITIS BACTERIAL
     Dosage: 1000 MG, UNK (TOOK THE LAST DOSE OF AMOXICILLIN (1000 MG) AT 9 AM)
     Route: 065
  2. AMOXICILLIN+CLAVULANIC ACID [Suspect]
     Active Substance: AMOXICILLIN\CLAVULANIC ACID
     Indication: SINUSITIS BACTERIAL
     Dosage: 1 DF, UNK (1 UG/LITRE)
     Route: 048

REACTIONS (12)
  - Generalised erythema [Fatal]
  - Dyspnoea [Fatal]
  - Chest pain [Fatal]
  - Multiple organ dysfunction syndrome [Fatal]
  - Loss of consciousness [Fatal]
  - Cardiac arrest [Fatal]
  - Anaphylactic reaction [Fatal]
  - Ventricular fibrillation [Fatal]
  - Circulatory collapse [Fatal]
  - Acute respiratory distress syndrome [Fatal]
  - Pneumonia [Fatal]
  - Septic shock [Fatal]
